FAERS Safety Report 8868673 (Version 1)
Quarter: 2012Q4

REPORT INFORMATION
  Report Type: 
  Country: FR (occurrence: FR)
  Receive Date: 20121024
  Receipt Date: 20121024
  Transmission Date: 20130627
  Serious: Yes (Hospitalization)
  Sender: FDA-Public Use
  Company Number: FR-ASTRAZENECA-2012SE79222

PATIENT
  Age: 60 Year
  Sex: Male

DRUGS (4)
  1. SYMBICORT TURBUHALER [Suspect]
     Indication: ASTHMA
     Dosage: Dosage and frequency unknown.
     Route: 055
     Dates: start: 201204, end: 20120823
  2. SINGULAIR [Suspect]
     Indication: ASTHMA
     Route: 048
     Dates: start: 201204, end: 20120823
  3. SALBUTAMOL SULFATE [Suspect]
     Indication: ASTHMA
     Route: 055
     Dates: start: 201204, end: 20120823
  4. OMEPRAZOLE [Concomitant]
     Dosage: Long run treatment.
     Route: 048

REACTIONS (1)
  - Leukocytoclastic vasculitis [Unknown]
